FAERS Safety Report 14271638 (Version 2)
Quarter: 2018Q1

REPORT INFORMATION
  Report Type: Spontaneous
  Country: SE (occurrence: SE)
  Receive Date: 20171211
  Receipt Date: 20180305
  Transmission Date: 20180508
  Serious: Yes (Other)
  Sender: FDA-Public Use
  Company Number: SE-OTSUKA-2017_019833

PATIENT
  Age: 19 Year
  Sex: Female

DRUGS (1)
  1. ABILIFY [Suspect]
     Active Substance: ARIPIPRAZOLE
     Indication: POST-TRAUMATIC STRESS DISORDER
     Dosage: UNK
     Route: 065
     Dates: end: 20170830

REACTIONS (9)
  - Anxiety [Unknown]
  - Product use in unapproved indication [Unknown]
  - Trismus [Unknown]
  - Liver injury [Unknown]
  - Joint stiffness [Unknown]
  - Thyroid disorder [Unknown]
  - Weight decreased [Unknown]
  - Constipation [Unknown]
  - Dizziness [Unknown]

NARRATIVE: CASE EVENT DATE: 20170827
